FAERS Safety Report 5109332-5 (Version None)
Quarter: 2006Q3

REPORT INFORMATION
  Report Type: 
  Country: None (occurrence: None)
  Receive Date: 20060920
  Receipt Date: 20060410
  Transmission Date: 20061208
  Serious: Yes (Hospitalization)
  Sender: FDA-Public Use
  Company Number: PHEH2006US04711

PATIENT
  Age: 77 Year
  Sex: Male

DRUGS (3)
  1. ENABLEX [Suspect]
     Indication: HYPERTONIC BLADDER
     Dosage: 15 MG, QD
     Dates: start: 20060201, end: 20060409
  2. LIPITOR                                 /NET/ [Concomitant]
  3. PROTONIX [Concomitant]

REACTIONS (6)
  - ERYTHEMA [None]
  - HYPERKERATOSIS [None]
  - INFECTION [None]
  - PRURITUS [None]
  - RASH MACULAR [None]
  - RASH MORBILLIFORM [None]
